FAERS Safety Report 4852677-4 (Version None)
Quarter: 2005Q4

REPORT INFORMATION
  Report Type: 
  Country: None (occurrence: None)
  Receive Date: 20051213
  Receipt Date: 20051208
  Transmission Date: 20060501
  Serious: Yes (Other)
  Sender: FDA-Public Use
  Company Number: GB-MERCK-0512GBR00046

PATIENT
  Age: 44 Year
  Sex: Female
  Weight: 45 kg

DRUGS (5)
  1. FOSAMAX [Suspect]
     Indication: OSTEOPOROSIS
     Route: 048
     Dates: start: 20030924, end: 20050422
  2. IBUPROFEN [Concomitant]
     Indication: DERMATOMYOSITIS
     Route: 048
     Dates: start: 20030924
  3. PREDNISOLONE [Concomitant]
     Indication: DERMATOMYOSITIS
     Route: 048
  4. TRIAMCINOLONE ACETONIDE [Concomitant]
     Indication: DERMATOMYOSITIS
     Route: 030
     Dates: start: 20030924
  5. RANITIDINE [Concomitant]
     Indication: GASTROOESOPHAGEAL REFLUX DISEASE
     Route: 048
     Dates: start: 20030924

REACTIONS (4)
  - DIZZINESS [None]
  - IMPAIRED DRIVING ABILITY [None]
  - MUSCLE TWITCHING [None]
  - VISUAL DISTURBANCE [None]
